FAERS Safety Report 5456533-2 (Version None)
Quarter: 2007Q3

REPORT INFORMATION
  Report Type: 
  Country: None (occurrence: None)
  Receive Date: 20070918
  Receipt Date: 20070911
  Transmission Date: 20080115
  Serious: Yes (Death)
  Sender: FDA-Public Use
  Company Number: A0680913A

PATIENT
  Age: 49 Year
  Sex: Female

DRUGS (9)
  1. IMITREX [Suspect]
     Indication: MIGRAINE
     Dosage: 100MG AS REQUIRED
     Route: 048
     Dates: start: 20060718
  2. CRESTOR [Concomitant]
  3. LEXAPRO [Concomitant]
  4. ALLEGRA [Concomitant]
  5. FELDENE [Concomitant]
  6. ANTIVERT [Concomitant]
  7. TRAZODONE HCL [Concomitant]
  8. CLONAZEPAM [Concomitant]
  9. RISPERDAL [Concomitant]

REACTIONS (1)
  - RESPIRATORY FUME INHALATION DISORDER [None]
